FAERS Safety Report 10868650 (Version 5)
Quarter: 2015Q2

REPORT INFORMATION
  Report Type: Spontaneous
  Country: US (occurrence: US)
  Receive Date: 20150225
  Receipt Date: 20150421
  Transmission Date: 20150821
  Serious: Yes (Other)
  Sender: FDA-Public Use
  Company Number: US-PFIZER INC-2015067925

PATIENT
  Age: 67 Year
  Sex: Female

DRUGS (2)
  1. PREMPRO [Suspect]
     Active Substance: ESTROGENS, CONJUGATED\MEDROXYPROGESTERONE ACETATE
     Indication: VULVOVAGINAL DRYNESS
     Dosage: 0.3 MG, 1X/DAY
  2. PREMPRO [Suspect]
     Active Substance: ESTROGENS, CONJUGATED\MEDROXYPROGESTERONE ACETATE
     Indication: MENOPAUSAL SYMPTOMS
     Dosage: 0.625 MG, 1X/DAY (TOTAL 8 DF)

REACTIONS (7)
  - Drug ineffective [Recovered/Resolved]
  - Abdominal distension [Unknown]
  - Dysmenorrhoea [Unknown]
  - Genital disorder female [Recovered/Resolved]
  - Feeling abnormal [Unknown]
  - Vaginal haemorrhage [Recovered/Resolved]
  - Pain [Unknown]
